FAERS Safety Report 11254741 (Version 1)
Quarter: 2015Q3

REPORT INFORMATION
  Report Type: Report from Study
  Country: FR (occurrence: FR)
  Receive Date: 20150709
  Receipt Date: 20150709
  Transmission Date: 20151125
  Serious: Yes (Hospitalization, Other)
  Sender: FDA-Public Use
  Company Number: FR-GLAXOSMITHKLINE-FR2015GSK096800

PATIENT
  Age: 60 Year

DRUGS (6)
  1. OMEGA-3-ACID ETHYL ESTERS. [Suspect]
     Active Substance: OMEGA-3-ACID ETHYL ESTERS
     Indication: ISCHAEMIC HEART DISEASE PROPHYLAXIS
     Dosage: UNK
     Dates: start: 20091031, end: 20131109
  2. PLAVIX [Concomitant]
     Active Substance: CLOPIDOGREL BISULFATE
  3. KARDEGIC [Concomitant]
     Active Substance: ASPIRIN LYSINE
  4. SOPROL [Concomitant]
  5. COVERSYL [Concomitant]
     Active Substance: PERINDOPRIL
  6. TAHOR [Concomitant]
     Active Substance: ATORVASTATIN CALCIUM

REACTIONS (2)
  - Arteriogram coronary [Unknown]
  - Angina pectoris [Unknown]

NARRATIVE: CASE EVENT DATE: 2013
